FAERS Safety Report 20628582 (Version 2)
Quarter: 2022Q2

REPORT INFORMATION
  Report Type: Spontaneous
  Country: JP (occurrence: JP)
  Receive Date: 20220323
  Receipt Date: 20220414
  Transmission Date: 20220720
  Serious: Yes (Hospitalization, Other)
  Sender: FDA-Public Use
  Company Number: JP-TAKEDA-2022TJP030433

PATIENT
  Age: 62 Year
  Sex: Female
  Weight: 45.7 kg

DRUGS (3)
  1. CABOMETYX [Suspect]
     Active Substance: CABOZANTINIB S-MALATE
     Indication: Renal neoplasm
     Dosage: 40 MG, QD
     Route: 048
     Dates: start: 20211110, end: 20211127
  2. CABOMETYX [Suspect]
     Active Substance: CABOZANTINIB S-MALATE
     Indication: Metastases to lung
     Dosage: UNK
  3. FEBUXOSTAT [Concomitant]
     Active Substance: FEBUXOSTAT
     Dosage: UNK
     Route: 065

REACTIONS (3)
  - Cardiac failure acute [Recovering/Resolving]
  - Physical deconditioning [Unknown]
  - Malaise [Unknown]

NARRATIVE: CASE EVENT DATE: 20211128
